FAERS Safety Report 22019851 (Version 4)
Quarter: 2023Q2

REPORT INFORMATION
  Report Type: Spontaneous
  Country: DE (occurrence: DE)
  Receive Date: 20230222
  Receipt Date: 20230603
  Transmission Date: 20230722
  Serious: Yes (Death, Hospitalization, Other)
  Sender: FDA-Public Use
  Company Number: DE-UNITED THERAPEUTICS-UNT-2023-004867

PATIENT

DRUGS (2)
  1. REMODULIN [Suspect]
     Active Substance: TREPROSTINIL
     Indication: Pulmonary arterial hypertension
     Dosage: 0.0772 ?G/KG, CONTINUING
     Route: 041
  2. REMODULIN [Suspect]
     Active Substance: TREPROSTINIL
     Dosage: UNK, CONTINUING
     Route: 041
     Dates: start: 20171115, end: 20230217

REACTIONS (11)
  - Device related sepsis [Fatal]
  - Enterobacter sepsis [Fatal]
  - Hepatitis C [Fatal]
  - General physical health deterioration [Unknown]
  - Oxygen saturation decreased [Unknown]
  - Hypercapnia [Unknown]
  - Respiratory acidosis [Unknown]
  - Exposure to communicable disease [Unknown]
  - Exposure to contaminated device [Unknown]
  - Tachyarrhythmia [Unknown]
  - Mean arterial pressure decreased [Unknown]

NARRATIVE: CASE EVENT DATE: 20230212
